FAERS Safety Report 5211613-1 (Version None)
Quarter: 2007Q1

REPORT INFORMATION
  Report Type: 
  Country: None (occurrence: None)
  Receive Date: 20070116
  Receipt Date: 20070116
  Transmission Date: 20070707
  Serious: No
  Sender: FDA-Public Use
  Company Number: None

PATIENT
  Age: 14 Year
  Sex: Male
  Weight: 70.3075 kg

DRUGS (1)
  1. PULMICORT [Suspect]
     Indication: ASTHMA
     Dosage: 2 INHILATIONS   2X PER DAY   INHAL
     Route: 055
     Dates: start: 20060110, end: 20061231

REACTIONS (1)
  - ACNE [None]
